FAERS Safety Report 21713823 (Version 3)
Quarter: 2022Q4

REPORT INFORMATION
  Report Type: Spontaneous
  Country: CA (occurrence: CA)
  Receive Date: 20221212
  Receipt Date: 20221228
  Transmission Date: 20230112
  Serious: No
  Sender: FDA-Public Use
  Company Number: CA-PFIZER INC-202201337007

PATIENT
  Age: 57 Year
  Sex: Male
  Weight: 86.168 kg

DRUGS (2)
  1. ABRILADA [Suspect]
     Active Substance: ADALIMUMAB-AFZB
     Indication: Ankylosing spondylitis
     Dosage: UNK
     Dates: start: 20221118
  2. ABRILADA [Suspect]
     Active Substance: ADALIMUMAB-AFZB
     Dosage: UNK
     Dates: start: 20221201

REACTIONS (5)
  - Injection site pain [Unknown]
  - Muscle spasms [Unknown]
  - Needle issue [Unknown]
  - Drug dose omission by device [Unknown]
  - Injection site induration [Unknown]

NARRATIVE: CASE EVENT DATE: 20221118
